FAERS Safety Report 9847139 (Version 1)
Quarter: 2014Q1

REPORT INFORMATION
  Report Type: Spontaneous
  Country: IT (occurrence: IT)
  Receive Date: 20140127
  Receipt Date: 20140127
  Transmission Date: 20141002
  Serious: Yes (Hospitalization, Other)
  Sender: FDA-Public Use
  Company Number: IT-009507513-1401ITA009071

PATIENT
  Age: 48 Year
  Sex: Male
  Weight: 104 kg

DRUGS (4)
  1. VICTRELIS [Suspect]
     Indication: CHRONIC HEPATITIS C
     Dosage: 12 UNIT DAILY
     Route: 048
     Dates: start: 20131102, end: 20140112
  2. RIBAVIRIN [Interacting]
     Indication: CHRONIC HEPATITIS C
     Dosage: 800 MG, QD
     Route: 048
     Dates: start: 20131026, end: 20140112
  3. PEGINTRON [Interacting]
     Indication: CHRONIC HEPATITIS C
     Dosage: 100 MICROGRAM, QW
     Route: 058
     Dates: start: 20131026, end: 20140111
  4. ACETAMINOPHEN [Concomitant]
     Dosage: UNK, TID

REACTIONS (3)
  - Agranulocytosis [Recovering/Resolving]
  - Inhibitory drug interaction [Unknown]
  - Inappropriate schedule of drug administration [Unknown]
